FAERS Safety Report 6840030-3 (Version None)
Quarter: 2010Q3

REPORT INFORMATION
  Report Type: 
  Country: None (occurrence: None)
  Receive Date: 20100713
  Receipt Date: 20100713
  Transmission Date: 20110219
  Serious: Yes (Hospitalization)
  Sender: FDA-Public Use
  Company Number: None

PATIENT
  Age: 16 Year
  Sex: Male
  Weight: 52.1637 kg

DRUGS (2)
  1. AMNESTEEM [Suspect]
     Indication: ACNE
     Dosage: 40 MG 1 CAPSULE DAILY ORAL STARTED 20 MG FOR 1 MONTH ON 40 MG FOR 10 DAYS THEN EVENT
     Route: 048
  2. AMNESTEEM [Suspect]
     Indication: ACNE
     Dosage: 40 MG 1 CAPSULE DAILY ORAL STARTED 20 MG FOR 1 MONTH ON 40 MG FOR 10 DAYS THEN EVENT
     Route: 048

REACTIONS (4)
  - CONVULSION [None]
  - EYE INJURY [None]
  - FALL [None]
  - SUTURE INSERTION [None]
